FAERS Safety Report 8580625-2 (Version None)
Quarter: 2012Q3

REPORT INFORMATION
  Report Type: 
  Country: None (occurrence: None)
  Receive Date: 20120809
  Receipt Date: 20120731
  Transmission Date: 20120928
  Serious: Yes (Hospitalization)
  Sender: FDA-Public Use
  Company Number: US-BIOGENIDEC-2012BI024620

PATIENT
  Sex: Female

DRUGS (23)
  1. TYSABRI [Suspect]
     Indication: MULTIPLE SCLEROSIS
     Route: 042
     Dates: start: 20080401, end: 20080819
  2. NAMENDA [Concomitant]
  3. ABILIFY [Concomitant]
  4. VYTORIN [Concomitant]
  5. NEXIUM [Concomitant]
  6. LEVOTHYROXINE SODIUM [Concomitant]
  7. WELLBUTRIN [Concomitant]
  8. COZAAR [Concomitant]
  9. HUMALOG [Concomitant]
  10. ASPIRIN [Concomitant]
  11. AMANTADINE HCL [Concomitant]
  12. TYSABRI [Suspect]
     Route: 042
     Dates: start: 20120118
  13. LISINOPRIL [Concomitant]
  14. REMERON [Concomitant]
  15. CALCIUM CARBONATE [Concomitant]
  16. FLEXERIL [Concomitant]
  17. CYMBALTA [Concomitant]
  18. LANTUS [Concomitant]
  19. LIDODERM [Concomitant]
  20. VICODIN [Concomitant]
  21. AMPYRA [Concomitant]
  22. FENTANYL [Concomitant]
  23. MAGNESIUM OXIDE [Concomitant]

REACTIONS (6)
  - FALL [None]
  - DIABETES MELLITUS [None]
  - SMALL INTESTINAL OBSTRUCTION [None]
  - CONVULSION [None]
  - DEMENTIA [None]
  - URINARY TRACT INFECTION [None]
